FAERS Safety Report 9452861 (Version 3)
Quarter: 2013Q4

REPORT INFORMATION
  Report Type: Spontaneous
  Country: US (occurrence: US)
  Receive Date: 20130812
  Receipt Date: 20131025
  Transmission Date: 20140711
  Serious: No
  Sender: FDA-Public Use
  Company Number: US-ALLERGAN-1311716US

PATIENT
  Age: 54 Year
  Sex: Female

DRUGS (7)
  1. RESTASIS [Suspect]
     Indication: DRY EYE
     Dosage: 2 GTT, BID
     Route: 047
     Dates: start: 20130327, end: 201306
  2. RESTASIS [Suspect]
     Dosage: 2 GTT, BID
     Dates: start: 201305, end: 20130801
  3. REFRESH PLUS [Concomitant]
     Indication: DRY EYE
     Dosage: UNK, QID
     Route: 047
  4. ARTIFICIAL TEARS [Concomitant]
     Indication: EYE LUBRICATION THERAPY
     Dosage: UNK UNK, PRN
     Route: 047
  5. EYE LUBRICANT NOS [Concomitant]
     Indication: EYE LUBRICATION THERAPY
     Dosage: UNK, PRN
     Route: 047
  6. TAPAZOLE [Concomitant]
     Indication: BASEDOW^S DISEASE
     Dosage: UNK UNK, QD
     Route: 048
     Dates: start: 2008
  7. STEROID INJECTION NOS [Concomitant]
     Indication: MENISCUS INJURY
     Dosage: UNK
     Dates: start: 20130731

REACTIONS (3)
  - Visual acuity reduced [Unknown]
  - Eye injury [Unknown]
  - Cataract [Unknown]
